FAERS Safety Report 9203660 (Version 4)
Quarter: 2014Q2

REPORT INFORMATION
  Report Type: Report from Study
  Country: MX (occurrence: MX)
  Receive Date: 20130402
  Receipt Date: 20140610
  Transmission Date: 20141212
  Serious: Yes (Death, Hospitalization, Other)
  Sender: FDA-Public Use
  Company Number: PHHY2013MX031472

PATIENT
  Age: 57 Year
  Sex: Male

DRUGS (4)
  1. GALVUS MET [Suspect]
     Indication: DIABETES MELLITUS
     Dosage: 2 DF, DAILY
     Dates: start: 201206
  2. EXFORGE HCT [Suspect]
     Indication: HYPERTENSION
     Dosage: 2 DF, (160 MG VALS /5 MG AMLO /12.5 MG HCTZ), DAILY
     Route: 048
     Dates: start: 201203
  3. LASIX [Concomitant]
     Indication: HYPERTENSION
     Dosage: 3 DF, DAILY
     Dates: start: 201108
  4. ACTOS [Concomitant]
     Indication: DIABETES MELLITUS
     Dosage: 1 DF, DAILY
     Dates: end: 199507

REACTIONS (7)
  - Respiratory arrest [Fatal]
  - Loss of consciousness [Fatal]
  - Aspiration bronchial [Fatal]
  - Vomiting [Fatal]
  - Gastric infection [Not Recovered/Not Resolved]
  - Convulsion [Unknown]
  - Cerebral haemorrhage [Unknown]
